FAERS Safety Report 14843721 (Version 16)
Quarter: 2020Q2

REPORT INFORMATION
  Report Type: Spontaneous
  Country: IL (occurrence: IL)
  Receive Date: 20180503
  Receipt Date: 20200610
  Transmission Date: 20200713
  Serious: Yes (Other)
  Sender: FDA-Public Use
  Company Number: IL-PFIZER INC-2018177834

PATIENT
  Age: 66 Year
  Sex: Male

DRUGS (5)
  1. ELELYSO [Suspect]
     Active Substance: TALIGLUCERASE ALFA
     Dosage: 3200/3400 IU PER INFUSION, TREATMENT DURATION: ABOUT AN HOUR AND A HALF
     Route: 042
  2. ELELYSO [Suspect]
     Active Substance: TALIGLUCERASE ALFA
     Dosage: 3600/3400 IU PER INFUSION TWICE A MONTH
     Route: 042
  3. ELELYSO [Suspect]
     Active Substance: TALIGLUCERASE ALFA
     Indication: GAUCHER^S DISEASE
     Dosage: 3300 IU, UNK (PER INFUSION (6600 IU FOR A MONTH))
     Route: 042
  4. ELELYSO [Suspect]
     Active Substance: TALIGLUCERASE ALFA
     Dosage: 3300 IU, UNK (PER INFUSION FOR AN HOUR AND A HALF)
     Route: 042
  5. ELELYSO [Suspect]
     Active Substance: TALIGLUCERASE ALFA
     Dosage: 3400 UNITS PER INFUSION
     Route: 042

REACTIONS (4)
  - Nasopharyngitis [Unknown]
  - Haemoglobin decreased [Unknown]
  - Cataract [Unknown]
  - Inappropriate schedule of product administration [Unknown]
